FAERS Safety Report 14660086 (Version 2)
Quarter: 2018Q1

REPORT INFORMATION
  Report Type: Spontaneous
  Country: RU (occurrence: RU)
  Receive Date: 20180320
  Receipt Date: 20180322
  Transmission Date: 20180509
  Serious: Yes (Congenital Anomaly)
  Sender: FDA-Public Use
  Company Number: RU-ABBVIE-18P-251-2286416-00

PATIENT
  Age: 9 Month
  Sex: Female

DRUGS (1)
  1. DEPAKINE CHRONOSPHERE [Suspect]
     Active Substance: VALPROIC ACID
     Indication: INFANTILE SPASMS
     Route: 048

REACTIONS (5)
  - Drug level decreased [Unknown]
  - Epilepsy [Recovered/Resolved]
  - Regurgitation [Unknown]
  - Underdose [Unknown]
  - Medication residue present [Unknown]
